FAERS Safety Report 10924295 (Version 1)
Quarter: 2015Q1

REPORT INFORMATION
  Report Type: Spontaneous
  Country: US (occurrence: US)
  Receive Date: 20150318
  Receipt Date: 20150318
  Transmission Date: 20150721
  Serious: No
  Sender: FDA-Public Use
  Company Number: US-CELGENEUS-USA-2015032391

PATIENT
  Sex: Male
  Weight: 136.2 kg

DRUGS (4)
  1. OTEZLA [Suspect]
     Active Substance: APREMILAST
     Indication: PSORIATIC ARTHROPATHY
     Route: 048
     Dates: start: 20141202, end: 20141215
  2. VICOPROFEN [Concomitant]
     Active Substance: HYDROCODONE BITARTRATE\IBUPROFEN
     Indication: SURGERY
     Route: 065
  3. OTEZLA [Suspect]
     Active Substance: APREMILAST
     Route: 048
     Dates: start: 20150102, end: 20150115
  4. XANAX [Concomitant]
     Active Substance: ALPRAZOLAM
     Indication: INSOMNIA
     Dosage: 2 MILLIGRAM
     Route: 065

REACTIONS (1)
  - Psoriasis [Not Recovered/Not Resolved]
